FAERS Safety Report 25038083 (Version 1)
Quarter: 2025Q1

REPORT INFORMATION
  Report Type: Spontaneous
  Country: US (occurrence: US)
  Receive Date: 20250304
  Receipt Date: 20250304
  Transmission Date: 20250409
  Serious: Yes (Hospitalization)
  Sender: RADIUS PHARM
  Company Number: US-RADIUS HEALTH INC.-2025US001671

PATIENT
  Age: 58 Year
  Sex: Female

DRUGS (1)
  1. TYMLOS [Suspect]
     Active Substance: ABALOPARATIDE
     Indication: Senile osteoporosis
     Route: 058
     Dates: start: 202404

REACTIONS (7)
  - Upper limb fracture [Unknown]
  - Fall [Unknown]
  - Lower limb fracture [Unknown]
  - Synovial cyst [Unknown]
  - Stress fracture [Unknown]
  - Weight bearing difficulty [Unknown]
  - Arthralgia [Unknown]

NARRATIVE: CASE EVENT DATE: 20250211
